APPROVED DRUG PRODUCT: TOPOTECAN HYDROCHLORIDE
Active Ingredient: TOPOTECAN HYDROCHLORIDE
Strength: EQ 4MG BASE/4ML (EQ 1MG BASE/ML)
Dosage Form/Route: SOLUTION;INTRAVENOUS
Application: A206074 | Product #001
Applicant: DASH PHARMACEUTICALS LLC
Approved: Nov 24, 2017 | RLD: No | RS: No | Type: DISCN